FAERS Safety Report 23766481 (Version 2)
Quarter: 2024Q2

REPORT INFORMATION
  Report Type: Spontaneous
  Country: US (occurrence: US)
  Receive Date: 20240422
  Receipt Date: 20240625
  Transmission Date: 20240716
  Serious: Yes (Hospitalization, Other)
  Sender: FDA-Public Use
  Company Number: US-BoehringerIngelheim-2024-BI-022458

PATIENT
  Age: 70 Year
  Sex: Female
  Weight: 112.6 kg

DRUGS (1)
  1. JARDIANCE [Suspect]
     Active Substance: EMPAGLIFLOZIN
     Indication: Heart failure with reduced ejection fraction
     Dates: start: 20240312, end: 20240316

REACTIONS (5)
  - Dyspnoea [Unknown]
  - Heart rate decreased [Unknown]
  - Fatigue [Unknown]
  - Atrioventricular block complete [Unknown]
  - Dizziness exertional [Unknown]

NARRATIVE: CASE EVENT DATE: 20240316
